FAERS Safety Report 8330361-2 (Version None)
Quarter: 2012Q2

REPORT INFORMATION
  Report Type: 
  Country: None (occurrence: None)
  Receive Date: 20120430
  Receipt Date: 20110115
  Transmission Date: 20120825
  Serious: Yes (Hospitalization, Other)
  Sender: FDA-Public Use
  Company Number: 2011AP000066

PATIENT
  Age: 67 Year
  Sex: Male

DRUGS (5)
  1. LOSARTAN POTASSIUM [Concomitant]
  2. OMEPRAZOLE [Suspect]
     Indication: GASTRIC DISORDER
     Dosage: 20 MG;QD ; 40 MG;QD
     Dates: start: 20060101, end: 20100101
  3. DILTIAZEM [Concomitant]
  4. ASPIRIN [Concomitant]
  5. FLUTICASONE PROPIONATE W/SALMETEROL (FLUTICASONE PROPIONATE W/SALMETER [Concomitant]

REACTIONS (10)
  - HYPOMAGNESAEMIA [None]
  - HYPOCALCAEMIA [None]
  - HYPOAESTHESIA [None]
  - MUSCULAR WEAKNESS [None]
  - DRUG EFFECT DECREASED [None]
  - PARAESTHESIA [None]
  - GASTRIC MUCOSAL HYPERTROPHY [None]
  - TETANY [None]
  - OESOPHAGITIS [None]
  - GASTROOESOPHAGEAL REFLUX DISEASE [None]
